FAERS Safety Report 6679679-X (Version None)
Quarter: 2010Q2

REPORT INFORMATION
  Report Type: 
  Country: None (occurrence: None)
  Receive Date: 20100413
  Receipt Date: 20100407
  Transmission Date: 20101027
  Serious: Yes (Hospitalization)
  Sender: FDA-Public Use
  Company Number: B0646964A

PATIENT

DRUGS (4)
  1. AUGMENTIN '125' [Suspect]
     Indication: INFECTION
     Dosage: 3600MG PER DAY
     Route: 042
     Dates: start: 20100208, end: 20100219
  2. TAVANIC [Suspect]
     Indication: INFECTION
     Dosage: 500MG PER DAY
     Route: 042
     Dates: start: 20100208, end: 20100219
  3. ENOXAPARIN SODIUM [Suspect]
     Indication: THROMBOSIS PROPHYLAXIS
     Dosage: 8000IU PER DAY
     Route: 065
     Dates: start: 20100125, end: 20100219
  4. TRENTAL [Concomitant]
     Dosage: 800MG PER DAY
     Route: 048
     Dates: start: 20100208, end: 20100324

REACTIONS (1)
  - RASH [None]
